FAERS Safety Report 10570992 (Version 2)
Quarter: 2014Q4

REPORT INFORMATION
  Report Type: Spontaneous
  Country: US (occurrence: US)
  Receive Date: 20141107
  Receipt Date: 20141201
  Transmission Date: 20150529
  Serious: Yes (Death, Hospitalization)
  Sender: FDA-Public Use
  Company Number: US-UNITED THERAPEUTICS-UNT-2014-010282

PATIENT
  Sex: Female

DRUGS (1)
  1. REMODULIN [Suspect]
     Active Substance: TREPROSTINIL
     Indication: PRODUCT USED FOR UNKNOWN INDICATION
     Dosage: 0.00325 ?G/KG, CONTINUING
     Route: 058
     Dates: start: 20131212, end: 20141121

REACTIONS (2)
  - Death [Fatal]
  - International normalised ratio abnormal [Unknown]

NARRATIVE: CASE EVENT DATE: 20141027
